FAERS Safety Report 5934032-9 (Version None)
Quarter: 2008Q4

REPORT INFORMATION
  Report Type: 
  Country: None (occurrence: None)
  Receive Date: 20081029
  Receipt Date: 20081023
  Transmission Date: 20090506
  Serious: Yes (Other)
  Sender: FDA-Public Use
  Company Number: US-ASTRAZENECA-2008AC02782

PATIENT
  Age: 63 Year
  Sex: Female

DRUGS (8)
  1. ANASTROZOLE [Suspect]
     Indication: BREAST CANCER
     Route: 048
  2. FULVESTRANT [Suspect]
     Indication: BREAST CANCER
     Route: 065
  3. TAMOXIFEN CITRATE [Suspect]
     Indication: BREAST CANCER
     Route: 048
     Dates: start: 19920101, end: 19940101
  4. LETROZOLE [Suspect]
     Indication: BREAST CANCER
     Route: 065
  5. GABAPENTIN [Suspect]
     Route: 065
  6. TRASTUZUMAB [Suspect]
     Indication: BREAST CANCER
     Route: 065
  7. METHIMAZOLE [Suspect]
     Indication: TOXIC NODULAR GOITRE
     Route: 065
  8. 131 I THERAPY [Concomitant]
     Indication: TOXIC NODULAR GOITRE

REACTIONS (1)
  - CUTANEOUS VASCULITIS [None]
